FAERS Safety Report 5035634-7 (Version None)
Quarter: 2006Q2

REPORT INFORMATION
  Report Type: 
  Country: None (occurrence: None)
  Receive Date: 20060627
  Receipt Date: 20060616
  Transmission Date: 20061013
  Serious: Yes (Hospitalization)
  Sender: FDA-Public Use
  Company Number: FR-GLAXOSMITHKLINE-B0428246B

PATIENT
  Sex: Male
  Weight: 3 kg

DRUGS (5)
  1. RETROVIR [Suspect]
     Indication: ANTIVIRAL PROPHYLAXIS
     Dosage: 2MGK FOUR TIMES PER DAY
     Route: 048
     Dates: start: 20060422
  2. TELZIR [Suspect]
     Indication: HIV INFECTION
     Dates: start: 20060222, end: 20060422
  3. KIVEXA [Suspect]
     Indication: HIV INFECTION
     Dates: start: 20060407, end: 20060422
  4. NORVIR [Suspect]
     Indication: HIV INFECTION
     Dates: start: 20060222, end: 20060422
  5. INVIRASE [Suspect]
     Indication: HIV INFECTION
     Dates: start: 20060222, end: 20060404

REACTIONS (9)
  - BLOOD THYROID STIMULATING HORMONE INCREASED [None]
  - CARDIAC FAILURE [None]
  - DRUG EXPOSURE DURING PREGNANCY [None]
  - HEPATOMEGALY [None]
  - MITRAL VALVE INCOMPETENCE [None]
  - NEONATAL DISORDER [None]
  - THYROXINE FREE INCREASED [None]
  - TRICUSPID VALVE INCOMPETENCE [None]
  - VEIN DISORDER [None]
